FAERS Safety Report 9034139 (Version 1)
Quarter: 2013Q1

REPORT INFORMATION
  Report Type: Spontaneous
  Country: DE (occurrence: DE)
  Receive Date: 20130128
  Receipt Date: 20130128
  Transmission Date: 20140127
  Serious: Yes (Other)
  Sender: FDA-Public Use
  Company Number: DE-AMGEN-DEUSP2011006536

PATIENT
  Age: 60 Year
  Sex: Female
  Weight: 66 kg

DRUGS (2)
  1. NPLATE [Suspect]
     Indication: IDIOPATHIC THROMBOCYTOPENIC PURPURA
     Dosage: 100 MUG/KG, UNK
     Dates: start: 20100120
  2. NPLATE [Suspect]
     Dosage: 300 MUG/KG, UNK

REACTIONS (2)
  - Drug ineffective [Unknown]
  - Haemorrhage [Unknown]
